FAERS Safety Report 22077126 (Version 2)
Quarter: 2023Q2

REPORT INFORMATION
  Report Type: Spontaneous
  Country: DE (occurrence: DE)
  Receive Date: 20230309
  Receipt Date: 20230407
  Transmission Date: 20230722
  Serious: Yes (Hospitalization, Other)
  Sender: FDA-Public Use
  Company Number: DE-JNJFOC-20230132438

PATIENT
  Age: 81 Year
  Sex: Female
  Weight: 63 kg

DRUGS (51)
  1. DEXAMETHASONE [Suspect]
     Active Substance: DEXAMETHASONE
     Indication: Plasma cell myeloma
     Dosage: UNK (4 PER CYCLE)
     Route: 042
     Dates: start: 20221031
  2. DEXAMETHASONE [Suspect]
     Active Substance: DEXAMETHASONE
     Dosage: UNK (4 PER CYCLE)
     Route: 042
     Dates: start: 20221104
  3. DEXAMETHASONE [Suspect]
     Active Substance: DEXAMETHASONE
     Dosage: UNK (4 PER CYCLE)
     Route: 042
     Dates: start: 20221116
  4. DEXAMETHASONE [Suspect]
     Active Substance: DEXAMETHASONE
     Dosage: UNK (4 PER CYCLE)
     Route: 042
     Dates: start: 20221124
  5. DEXAMETHASONE [Suspect]
     Active Substance: DEXAMETHASONE
     Dosage: UNK (4 PER CYCLE)
     Route: 042
     Dates: start: 20221207
  6. DEXAMETHASONE [Suspect]
     Active Substance: DEXAMETHASONE
     Dosage: UNK (4 PER CYCLE)
     Route: 042
     Dates: start: 20221214
  7. DEXAMETHASONE [Suspect]
     Active Substance: DEXAMETHASONE
     Dosage: UNK (4 PER CYCLE)
     Route: 042
     Dates: start: 20221223
  8. DEXAMETHASONE [Suspect]
     Active Substance: DEXAMETHASONE
     Dosage: UNK (4 PER CYCLE)
     Route: 042
     Dates: start: 20221230
  9. DEXAMETHASONE [Suspect]
     Active Substance: DEXAMETHASONE
     Dosage: UNK (4 PER CYCLE)
     Route: 042
     Dates: start: 20230112
  10. DEXAMETHASONE [Suspect]
     Active Substance: DEXAMETHASONE
     Dosage: UNK
     Route: 042
     Dates: start: 20230127
  11. DEXAMETHASONE [Suspect]
     Active Substance: DEXAMETHASONE
     Dosage: 20 MG
     Route: 042
     Dates: start: 20230223
  12. DEXAMETHASONE [Suspect]
     Active Substance: DEXAMETHASONE
     Dosage: 20 MG
     Route: 042
     Dates: start: 20230209
  13. DEXAMETHASONE [Suspect]
     Active Substance: DEXAMETHASONE
     Dosage: 20 MG
     Route: 042
     Dates: start: 20230309
  14. DEXAMETHASONE [Suspect]
     Active Substance: DEXAMETHASONE
     Dosage: 20 MG
     Route: 042
     Dates: start: 20230320
  15. LENALIDOMIDE [Suspect]
     Active Substance: LENALIDOMIDE
     Indication: Plasma cell myeloma
     Dosage: 25MG (21 PER CYCLE)
     Route: 048
     Dates: start: 20221031, end: 20221120
  16. LENALIDOMIDE [Suspect]
     Active Substance: LENALIDOMIDE
     Dosage: 20MG (21 PER CYCLE)
     Route: 048
     Dates: start: 20221128, end: 20221218
  17. LENALIDOMIDE [Suspect]
     Active Substance: LENALIDOMIDE
     Dosage: 20MG (21 PER CYCLE)
     Route: 048
     Dates: start: 20221226, end: 20230115
  18. LENALIDOMIDE [Suspect]
     Active Substance: LENALIDOMIDE
     Dosage: UNK (CYCLE 4)
     Route: 048
     Dates: start: 20230202, end: 20230222
  19. LENALIDOMIDE [Suspect]
     Active Substance: LENALIDOMIDE
     Dosage: UNK
     Route: 048
     Dates: start: 20230209
  20. LENALIDOMIDE [Suspect]
     Active Substance: LENALIDOMIDE
     Dosage: 20 MG (CYCLE 5)
     Route: 048
     Dates: start: 20230302
  21. DARATUMUMAB [Suspect]
     Active Substance: DARATUMUMAB
     Indication: Plasma cell myeloma
     Dosage: 8 MG/KG, QW
     Route: 042
     Dates: start: 20221031
  22. DARATUMUMAB [Suspect]
     Active Substance: DARATUMUMAB
     Dosage: 16 MG/KG, QW
     Route: 042
     Dates: start: 20221031
  23. DARATUMUMAB [Suspect]
     Active Substance: DARATUMUMAB
     Dosage: 8 MG/KG, QW
     Route: 042
     Dates: start: 20221104
  24. DARATUMUMAB [Suspect]
     Active Substance: DARATUMUMAB
     Dosage: 16 MG/KG, QW
     Route: 042
     Dates: start: 20221116
  25. DARATUMUMAB [Suspect]
     Active Substance: DARATUMUMAB
     Dosage: 16 MG/KG, QW
     Route: 042
     Dates: start: 20221124
  26. DARATUMUMAB [Suspect]
     Active Substance: DARATUMUMAB
     Dosage: 16 MG/KG, QW
     Route: 042
     Dates: start: 20221201
  27. DARATUMUMAB [Suspect]
     Active Substance: DARATUMUMAB
     Dosage: 16 MG/KG, QW
     Route: 042
     Dates: start: 20221207
  28. DARATUMUMAB [Suspect]
     Active Substance: DARATUMUMAB
     Dosage: 16 MG/KG, QW
     Route: 042
     Dates: start: 20221214
  29. DARATUMUMAB [Suspect]
     Active Substance: DARATUMUMAB
     Dosage: 16 MG/KG, QW
     Route: 042
     Dates: start: 20221223
  30. DARATUMUMAB [Suspect]
     Active Substance: DARATUMUMAB
     Dosage: 16 MG/KG, QW
     Route: 042
     Dates: start: 20221230
  31. DARATUMUMAB [Suspect]
     Active Substance: DARATUMUMAB
     Dosage: 16 MG/KG, QW
     Route: 042
     Dates: start: 20230112
  32. DARATUMUMAB [Suspect]
     Active Substance: DARATUMUMAB
     Dosage: 16 MG/KG, QW
     Route: 042
     Dates: start: 20230127
  33. DARATUMUMAB [Suspect]
     Active Substance: DARATUMUMAB
     Dosage: 16 MG/KG, QW
     Route: 042
     Dates: start: 20230209
  34. DARATUMUMAB [Suspect]
     Active Substance: DARATUMUMAB
     Dosage: 16 MG/KG
     Route: 042
     Dates: start: 20230223
  35. DARATUMUMAB [Suspect]
     Active Substance: DARATUMUMAB
     Dosage: 16 MG/KG
     Route: 042
     Dates: start: 20230309
  36. DARATUMUMAB [Suspect]
     Active Substance: DARATUMUMAB
     Dosage: 16 MG/KG
     Route: 042
     Dates: start: 20230320
  37. HYDROMORPHONE [Concomitant]
     Active Substance: HYDROMORPHONE
     Indication: Polymyalgia rheumatica
     Dosage: 4 MG, (PM (AS NEEDED))
     Route: 048
     Dates: start: 20221124, end: 20230223
  38. HYDROMORPHONE [Concomitant]
     Active Substance: HYDROMORPHONE
     Dosage: 2.6 MG,   (AS NEEDED)
     Route: 048
  39. HYDROMORPHONE [Concomitant]
     Active Substance: HYDROMORPHONE
     Dosage: 2 MG,  (AS NEEDED)
     Route: 048
  40. HYDROMORPHONE [Concomitant]
     Active Substance: HYDROMORPHONE
     Dosage: 2 MG (PM (AS NEEDED))
     Route: 048
     Dates: start: 20221124
  41. HYDROMORPHONE [Concomitant]
     Active Substance: HYDROMORPHONE
     Dosage: 2.6 MG (PM (AS NEEDED))
     Route: 048
     Dates: start: 20221124, end: 20230223
  42. ACETAMINOPHEN [Concomitant]
     Active Substance: ACETAMINOPHEN
     Indication: Prophylaxis
     Dosage: 500 MG (PER CYCLE)
     Route: 048
     Dates: start: 20221031
  43. DIMETHINDENE [Concomitant]
     Active Substance: DIMETHINDENE
     Indication: Prophylaxis
     Dosage: 1 MG, QW
     Route: 042
     Dates: start: 20221031
  44. AMITRIPTYLINE [Concomitant]
     Active Substance: AMITRIPTYLINE
     Indication: Polymyalgia rheumatica
     Dosage: 25 MG,  (PM (AS NEEDED))
     Route: 048
     Dates: start: 20221124
  45. ACYCLOVIR [Concomitant]
     Active Substance: ACYCLOVIR
     Indication: Prophylaxis
     Dosage: 400 MG, QD
     Route: 048
     Dates: start: 20221031
  46. METAMIZOLE [Concomitant]
     Active Substance: METAMIZOLE
     Indication: Polymyalgia rheumatica
     Dosage: 500 MG,  (PM (AS NEEDED))
     Route: 048
     Dates: start: 20221124
  47. ASPIRIN [Concomitant]
     Active Substance: ASPIRIN
     Indication: Prophylaxis
     Dosage: 100 MG,(PM (AS NEEDED))
     Route: 048
     Dates: start: 20221031
  48. METOCLOPRAMIDE [Concomitant]
     Active Substance: METOCLOPRAMIDE
     Indication: Prophylaxis
     Dosage: 10 MG
     Route: 048
     Dates: start: 202301
  49. NYSTATIN [Concomitant]
     Active Substance: NYSTATIN
     Indication: Chronic gastritis
     Dosage: 1 IU (0.25 DAY)
     Route: 048
     Dates: start: 20230127, end: 20230210
  50. SPIRONOLACTONE [Concomitant]
     Active Substance: SPIRONOLACTONE
     Indication: Coronary artery disease
     Dosage: 25 MG
     Route: 048
     Dates: start: 20230127
  51. PANTOPRAZOLE [Concomitant]
     Active Substance: PANTOPRAZOLE
     Indication: Prophylaxis
     Dosage: 40 MG
     Route: 048
     Dates: start: 20230117

REACTIONS (4)
  - Nausea [Not Recovered/Not Resolved]
  - Vomiting [Recovered/Resolved]
  - Oesophageal candidiasis [Recovered/Resolved]
  - Rib fracture [Recovered/Resolved]

NARRATIVE: CASE EVENT DATE: 20230101
